FAERS Safety Report 9948188 (Version 1)
Quarter: 2014Q1

REPORT INFORMATION
  Report Type: Report from Study
  Country: US (occurrence: US)
  Receive Date: 20140303
  Receipt Date: 20140303
  Transmission Date: 20141002
  Serious: No
  Sender: FDA-Public Use
  Company Number: US-ABBVIE-13P-163-1061235-00

PATIENT
  Age: 63 Year
  Sex: Male
  Weight: 84.9 kg

DRUGS (6)
  1. HUMIRA [Suspect]
     Indication: ANKYLOSING SPONDYLITIS
     Dates: start: 2011
  2. AMTRIPTYLINE [Concomitant]
     Indication: PRODUCT USED FOR UNKNOWN INDICATION
  3. ALDACTONE [Concomitant]
     Indication: PRODUCT USED FOR UNKNOWN INDICATION
  4. ESTRADIOL [Concomitant]
     Indication: TRANSGENDER OPERATION
     Route: 050
  5. PROVERA [Concomitant]
     Indication: TRANSGENDER OPERATION
  6. EQUATE ALLERGY RELIEF [Concomitant]
     Indication: ALLERGY TO ANIMAL

REACTIONS (7)
  - Oropharyngeal pain [Not Recovered/Not Resolved]
  - Nasopharyngitis [Not Recovered/Not Resolved]
  - Upper-airway cough syndrome [Not Recovered/Not Resolved]
  - Cough [Not Recovered/Not Resolved]
  - Ear congestion [Not Recovered/Not Resolved]
  - Insomnia [Recovering/Resolving]
  - Productive cough [Not Recovered/Not Resolved]
